FAERS Safety Report 18987674 (Version 1)
Quarter: 2021Q1

REPORT INFORMATION
  Report Type: Spontaneous
  Country: US (occurrence: US)
  Receive Date: 20210309
  Receipt Date: 20210309
  Transmission Date: 20210420
  Serious: No
  Sender: FDA-Public Use
  Company Number: US-SA-2021SA077163

PATIENT
  Sex: Female

DRUGS (1)
  1. DUPIXENT [Suspect]
     Active Substance: DUPILUMAB
     Indication: ILLNESS
     Route: 058

REACTIONS (4)
  - Dry eye [Unknown]
  - Injection site pruritus [Unknown]
  - Product dose omission issue [Unknown]
  - Injection site erythema [Unknown]
